FAERS Safety Report 22361206 (Version 1)
Quarter: 2023Q2

REPORT INFORMATION
  Report Type: Spontaneous
  Country: US (occurrence: US)
  Receive Date: 20230524
  Receipt Date: 20230524
  Transmission Date: 20230722
  Serious: Yes (Other)
  Sender: FDA-Public Use
  Company Number: US-PFIZER INC-US-GBT-020020

PATIENT
  Age: 57 Year
  Sex: Female

DRUGS (1)
  1. OXBRYTA [Suspect]
     Active Substance: VOXELOTOR
     Indication: Product used for unknown indication
     Dosage: 1000 MG, 1X/DAY
     Route: 048

REACTIONS (4)
  - Haemoglobin decreased [Unknown]
  - Drug ineffective [Unknown]
  - Pyrexia [Unknown]
  - Ligament sprain [Not Recovered/Not Resolved]

NARRATIVE: CASE EVENT DATE: 20230101
